FAERS Safety Report 10066232 (Version 1)
Quarter: 2014Q2

REPORT INFORMATION
  Report Type: Spontaneous
  Country: US (occurrence: None)
  Receive Date: 20140402
  Receipt Date: 20140402
  Transmission Date: 20141212
  Serious: Yes (Life-Threatening, Hospitalization)
  Sender: FDA-Public Use
  Company Number: 2013STPI000156

PATIENT
  Age: 13 Year
  Sex: Female
  Weight: 58.5 kg

DRUGS (3)
  1. ONCASPAR [Suspect]
     Indication: ACUTE LYMPHOCYTIC LEUKAEMIA
     Route: 042
     Dates: start: 201303, end: 201303
  2. METHOTREXATE SODIUM [Concomitant]
  3. VINCRISTINE SULFATE [Concomitant]

REACTIONS (1)
  - Hypersensitivity [None]
